FAERS Safety Report 9989369 (Version 1)
Quarter: 2014Q1

REPORT INFORMATION
  Report Type: Spontaneous
  Country: US (occurrence: None)
  Receive Date: 20140123
  Receipt Date: 20140123
  Transmission Date: 20141002
  Serious: Yes (Hospitalization)
  Sender: FDA-Public Use
  Company Number: UTC-039371

PATIENT
  Age: 44 Year
  Sex: Male
  Weight: 95.45 kg

DRUGS (3)
  1. REMODULIN [Suspect]
     Indication: COR PULMONALE CHRONIC
     Dosage: 48.96 UB/KG (0.034 UG/KG, 1 IN 1 MIN ) , SUBCUTANEOUS
     Route: 058
     Dates: start: 20090909
  2. REVATIO (SILDENAFIL CITRATE) [Concomitant]
  3. LETAIRIS (AMBRISENTAN) (TABLETS) [Concomitant]

REACTIONS (1)
  - Bacteraemia [None]
